FAERS Safety Report 9476143 (Version 6)
Quarter: 2024Q2

REPORT INFORMATION
  Report Type: Report from Study
  Country: JP (occurrence: JP)
  Receive Date: 20130826
  Receipt Date: 20240527
  Transmission Date: 20240716
  Serious: Yes (Other)
  Sender: FDA-Public Use
  Company Number: JP-JNJFOC-20130808303

PATIENT
  Age: 59 Year
  Sex: Female

DRUGS (35)
  1. PREZISTA [Suspect]
     Active Substance: DARUNAVIR ETHANOLATE
     Indication: HIV infection
     Route: 048
     Dates: start: 20110614, end: 20110815
  2. NORVIR [Suspect]
     Active Substance: RITONAVIR
     Indication: HIV infection
     Route: 048
     Dates: start: 20110614, end: 20110815
  3. TRUVADA [Suspect]
     Active Substance: EMTRICITABINE\TENOFOVIR DISOPROXIL FUMARATE
     Indication: HIV infection
     Route: 048
     Dates: start: 20110614
  4. ISENTRESS [Suspect]
     Active Substance: RALTEGRAVIR POTASSIUM
     Indication: HIV infection
     Route: 048
     Dates: start: 20110816
  5. PREDNISOLONE [Suspect]
     Active Substance: PREDNISOLONE
     Indication: Drug eruption
     Route: 065
     Dates: start: 20110624, end: 20110720
  6. PREDNISOLONE [Suspect]
     Active Substance: PREDNISOLONE
     Route: 065
     Dates: start: 20110627, end: 20110703
  7. PREDNISOLONE [Suspect]
     Active Substance: PREDNISOLONE
     Route: 065
     Dates: start: 20110704, end: 20110710
  8. PREDNISOLONE [Suspect]
     Active Substance: PREDNISOLONE
     Route: 065
     Dates: start: 20110711, end: 20110727
  9. PREDNISOLONE [Suspect]
     Active Substance: PREDNISOLONE
     Route: 065
     Dates: start: 20110721, end: 20110817
  10. PREDNISOLONE [Suspect]
     Active Substance: PREDNISOLONE
     Route: 065
     Dates: start: 20110804, end: 20110828
  11. PREDNISOLONE [Suspect]
     Active Substance: PREDNISOLONE
     Route: 065
     Dates: start: 20110818, end: 20110824
  12. PREDNISOLONE [Suspect]
     Active Substance: PREDNISOLONE
     Route: 065
     Dates: start: 20110819, end: 20110831
  13. PREDNISOLONE [Suspect]
     Active Substance: PREDNISOLONE
     Route: 065
     Dates: start: 20110901, end: 20110904
  14. PREDNISOLONE [Suspect]
     Active Substance: PREDNISOLONE
     Route: 065
     Dates: start: 20110905, end: 20110907
  15. VFEND [Suspect]
     Active Substance: VORICONAZOLE
     Indication: Aspergillus test
     Route: 048
     Dates: start: 20110816, end: 20120911
  16. ITRACONAZOLE [Concomitant]
     Active Substance: ITRACONAZOLE
     Indication: Aspergillus test
     Route: 048
     Dates: start: 20110711, end: 20110815
  17. ITRACONAZOLE [Concomitant]
     Active Substance: ITRACONAZOLE
     Route: 048
     Dates: start: 20110912, end: 20111103
  18. ACETAMINOPHEN\TRAMADOL [Concomitant]
     Active Substance: ACETAMINOPHEN\TRAMADOL
     Indication: Back pain
     Route: 048
     Dates: start: 20111024, end: 20111211
  19. ACETAMINOPHEN\TRAMADOL [Concomitant]
     Active Substance: ACETAMINOPHEN\TRAMADOL
     Route: 048
     Dates: start: 20111212, end: 20120719
  20. ACETAMINOPHEN\TRAMADOL [Concomitant]
     Active Substance: ACETAMINOPHEN\TRAMADOL
     Route: 048
     Dates: start: 20120720, end: 20130705
  21. VALGANCICLOVIR HYDROCHLORIDE [Concomitant]
     Active Substance: VALGANCICLOVIR HYDROCHLORIDE
     Indication: Cytomegalovirus test positive
     Route: 048
     Dates: start: 20110818, end: 20110822
  22. LANSOPRAZOLE [Concomitant]
     Active Substance: LANSOPRAZOLE
     Indication: Prophylaxis
     Route: 048
     Dates: start: 20110624, end: 20140131
  23. TALION [Concomitant]
     Indication: Drug eruption
     Route: 048
     Dates: start: 20110627, end: 20110907
  24. SULFAMETHOXAZOLE\TRIMETHOPRIM [Concomitant]
     Active Substance: SULFAMETHOXAZOLE\TRIMETHOPRIM
     Indication: Antifungal prophylaxis
     Route: 048
     Dates: start: 20110808, end: 20111012
  25. FLORID (MICONAZOLE NITRATE) [Concomitant]
     Indication: Oral candidiasis
     Route: 049
     Dates: start: 20110818, end: 20110828
  26. URSO [Concomitant]
     Active Substance: URSODIOL
     Indication: Hepatic function abnormal
     Route: 048
     Dates: start: 20110902, end: 20110904
  27. URSO [Concomitant]
     Active Substance: URSODIOL
     Route: 048
     Dates: start: 20110905, end: 20111103
  28. DEXTROMETHORPHAN HYDROBROMIDE [Concomitant]
     Active Substance: DEXTROMETHORPHAN HYDROBROMIDE
     Indication: Cough
     Route: 048
     Dates: start: 20110624, end: 20110724
  29. TRANSAMIN [Concomitant]
     Active Substance: TRANEXAMIC ACID
     Indication: Cough
     Route: 048
     Dates: start: 20110627, end: 20110814
  30. PREDNISOLONE [Concomitant]
     Active Substance: PREDNISOLONE
     Indication: Drug eruption
     Route: 048
     Dates: start: 20110728, end: 20110803
  31. ALENDRONATE SODIUM [Concomitant]
     Active Substance: ALENDRONATE SODIUM
     Indication: Osteoporosis prophylaxis
     Route: 048
     Dates: start: 20111024
  32. ALENDRONATE SODIUM [Concomitant]
     Active Substance: ALENDRONATE SODIUM
     Indication: Spinal compression fracture
  33. ITRACONAZOLE [Concomitant]
     Active Substance: ITRACONAZOLE
     Indication: Aspergillus test
     Route: 048
     Dates: start: 20120421, end: 20121115
  34. LYRICA [Concomitant]
     Active Substance: PREGABALIN
     Indication: Nasopharyngitis
     Route: 048
     Dates: start: 20121005, end: 20130405
  35. LYRICA [Concomitant]
     Active Substance: PREGABALIN
     Indication: Back pain
     Route: 048
     Dates: start: 20130406, end: 20130510

REACTIONS (9)
  - Chronic kidney disease [Not Recovered/Not Resolved]
  - Osteoporotic fracture [Recovering/Resolving]
  - Hepatic function abnormal [Recovered/Resolved]
  - Pain [Recovered/Resolved]
  - Fungal test positive [Not Recovered/Not Resolved]
  - Drug eruption [Recovered/Resolved]
  - Oral candidiasis [Recovered/Resolved]
  - Feeling cold [Recovered/Resolved]
  - Cytomegalovirus test positive [Recovered/Resolved]

NARRATIVE: CASE EVENT DATE: 20110624
